FAERS Safety Report 24614726 (Version 1)
Quarter: 2024Q4

REPORT INFORMATION
  Report Type: Spontaneous
  Country: JP (occurrence: JP)
  Receive Date: 20241113
  Receipt Date: 20241113
  Transmission Date: 20250114
  Serious: Yes (Other)
  Sender: REGENERON
  Company Number: JP-REGENERON PHARMACEUTICALS, INC.-2024-151500

PATIENT
  Age: 75 Year
  Sex: Female

DRUGS (1)
  1. LIBTAYO [Suspect]
     Active Substance: CEMIPLIMAB-RWLC
     Indication: Cervix carcinoma recurrent
     Dosage: UNK

REACTIONS (5)
  - Cardiomyopathy [Unknown]
  - Ileus [Unknown]
  - Hypothyroidism [Recovering/Resolving]
  - Disease progression [Unknown]
  - Anaemia [Unknown]
